FAERS Safety Report 8564058-0 (Version None)
Quarter: 2012Q3

REPORT INFORMATION
  Report Type: 
  Country: None (occurrence: None)
  Receive Date: 20120803
  Receipt Date: 20120721
  Transmission Date: 20120928
  Serious: Yes (Other)
  Sender: FDA-Public Use
  Company Number: GB-RANBAXY-2012R1-58417

PATIENT
  Age: 52 Year
  Sex: Male

DRUGS (4)
  1. CITALOPRAM HYDROBROMIDE [Concomitant]
     Indication: MOOD ALTERED
     Dosage: 10MG, 1X/DAY, NOCTE
     Route: 065
     Dates: start: 20110808
  2. OXYCONTIN [Concomitant]
     Indication: PAIN
     Dosage: 70MG, 2X/DAY (70MG, 2 IN 1 D)
     Route: 048
  3. GABAPENTIN [Suspect]
     Indication: PAIN
     Dosage: 600/300/600
     Route: 065
     Dates: start: 20110809
  4. GABAPENTIN [Suspect]
     Dosage: 300UNK, 3X/DAY (3 IN 1 D)
     Route: 048
     Dates: start: 20110725

REACTIONS (4)
  - SEDATION [None]
  - SUICIDAL IDEATION [None]
  - DEPRESSED MOOD [None]
  - ANXIETY [None]
